FAERS Safety Report 22537515 (Version 2)
Quarter: 2023Q2

REPORT INFORMATION
  Report Type: Spontaneous
  Country: US (occurrence: US)
  Receive Date: 20230608
  Receipt Date: 20230619
  Transmission Date: 20230722
  Serious: Yes (Hospitalization)
  Sender: FDA-Public Use
  Company Number: US-TEVA-2023-US-2893771

PATIENT
  Age: 7 Decade
  Sex: Male

DRUGS (9)
  1. PREDNISONE [Suspect]
     Active Substance: PREDNISONE
     Indication: Mantle cell lymphoma
     Dosage: 40 MILLIGRAM DAILY; ONCE DAILY
     Route: 048
  2. RITUXIMAB [Suspect]
     Active Substance: RITUXIMAB
     Indication: Mantle cell lymphoma
     Route: 065
  3. ACALABRUTINIB [Suspect]
     Active Substance: ACALABRUTINIB
     Indication: Mantle cell lymphoma
     Route: 065
  4. RUXOLITINIB [Suspect]
     Active Substance: RUXOLITINIB
     Indication: Mantle cell lymphoma
     Route: 048
  5. ATOVAQUONE [Suspect]
     Active Substance: ATOVAQUONE
     Indication: Antifungal prophylaxis
     Dosage: 1500 MILLIGRAM DAILY; ONCE DAILY
     Route: 048
  6. ATOVAQUONE [Suspect]
     Active Substance: ATOVAQUONE
     Indication: Babesiosis
     Dosage: 750MG TWICE DAILY
     Route: 048
  7. AZITHROMYCIN [Concomitant]
     Active Substance: AZITHROMYCIN
     Indication: Babesiosis
     Dosage: 500 MILLIGRAM DAILY; ONCE DAILY
     Route: 048
  8. CLINDAMYCIN [Concomitant]
     Active Substance: CLINDAMYCIN
     Indication: Babesiosis
     Dosage: 1800 MILLIGRAM DAILY; 600MG EVERY 8 HOURS
     Route: 042
  9. CLINDAMYCIN [Concomitant]
     Active Substance: CLINDAMYCIN
     Dosage: 2400 MILLIGRAM DAILY; 600MG EVERY 6 HOURS
     Route: 042

REACTIONS (2)
  - Babesiosis [Recovered/Resolved]
  - Drug resistance [Unknown]
